FAERS Safety Report 9812574 (Version 3)
Quarter: 2014Q1

REPORT INFORMATION
  Report Type: Spontaneous
  Country: US (occurrence: US)
  Receive Date: 20140113
  Receipt Date: 20140212
  Transmission Date: 20141002
  Serious: Yes (Other)
  Sender: FDA-Public Use
  Company Number: US-AMGEN-USASP2014000943

PATIENT
  Age: 87 Year
  Sex: Male
  Weight: 62.13 kg

DRUGS (12)
  1. XGEVA [Suspect]
     Indication: PROSTATE CANCER
     Dosage: 120 MG, QMO
     Route: 058
     Dates: start: 20130612
  2. XGEVA [Suspect]
     Dosage: UNK
     Route: 065
     Dates: start: 20130821
  3. XGEVA [Suspect]
     Dosage: UNK
     Route: 065
     Dates: start: 20130926
  4. XGEVA [Suspect]
     Dosage: UNK
     Route: 065
     Dates: start: 20131024
  5. XGEVA [Suspect]
     Dosage: UNK
     Route: 065
     Dates: start: 20131122
  6. XGEVA [Suspect]
     Dosage: UNK
     Route: 065
     Dates: start: 20131220
  7. FIRMAGON /01764801/ [Suspect]
     Indication: PROSTATE CANCER
     Dosage: 80 MG, QMO
     Route: 048
     Dates: start: 20131220
  8. ASPIRIN [Concomitant]
     Route: 048
  9. VITAMIN C                          /00008001/ [Concomitant]
     Route: 048
  10. VITAMIN D                          /00107901/ [Concomitant]
     Route: 048
  11. LIPITOR [Concomitant]
     Dosage: 10 MG, UNK
     Route: 048
  12. LISINOPRIL [Concomitant]

REACTIONS (8)
  - Swelling [Recovered/Resolved]
  - Abdominal pain [Unknown]
  - Lip swelling [Recovered/Resolved]
  - Rash [Unknown]
  - Fatigue [Unknown]
  - Asthenia [Unknown]
  - Anaphylactic reaction [Unknown]
  - Dyspnoea [Unknown]
